FAERS Safety Report 6838928-5 (Version None)
Quarter: 2010Q3

REPORT INFORMATION
  Report Type: 
  Country: None (occurrence: None)
  Receive Date: 20100713
  Receipt Date: 20070904
  Transmission Date: 20110219
  Serious: No
  Sender: FDA-Public Use
  Company Number: US-PFIZER INC-2007035338

PATIENT
  Sex: Female
  Weight: 104.3 kg

DRUGS (12)
  1. CHANTIX [Suspect]
     Indication: SMOKING CESSATION THERAPY
     Dates: start: 20070401
  2. WARFARIN SODIUM [Concomitant]
  3. METFORMIN [Concomitant]
  4. AVANDIA [Concomitant]
  5. GLIMEPIRIDE [Concomitant]
  6. TOPROL-XL [Concomitant]
  7. LIPITOR [Concomitant]
  8. NIASPAN [Concomitant]
  9. TOPAMAX [Concomitant]
  10. NASACORT AQ [Concomitant]
  11. ADVAIR DISKUS 100/50 [Concomitant]
  12. DRUG, UNSPECIFIED [Concomitant]

REACTIONS (5)
  - DECREASED APPETITE [None]
  - MALAISE [None]
  - NAUSEA [None]
  - SOMNOLENCE [None]
  - WEIGHT DECREASED [None]
